FAERS Safety Report 19156345 (Version 1)
Quarter: 2021Q2

REPORT INFORMATION
  Report Type: Spontaneous
  Country: US (occurrence: US)
  Receive Date: 20210419
  Receipt Date: 20210419
  Transmission Date: 20210717
  Serious: No
  Sender: FDA-Public Use
  Company Number: US-ABBVIE-21K-163-3812772-00

PATIENT
  Age: 8 Year
  Sex: Female

DRUGS (2)
  1. LUPRON DEPOT [Suspect]
     Active Substance: LEUPROLIDE ACETATE
     Indication: PRECOCIOUS PUBERTY
     Route: 030
     Dates: start: 20190917, end: 20201208
  2. LUPRON DEPOT [Suspect]
     Active Substance: LEUPROLIDE ACETATE
     Route: 030
     Dates: start: 20210127

REACTIONS (4)
  - Injection site rash [Recovering/Resolving]
  - Injection site papule [Recovering/Resolving]
  - Drug ineffective [Recovered/Resolved]
  - Injection site erythema [Recovering/Resolving]

NARRATIVE: CASE EVENT DATE: 202012
